FAERS Safety Report 10030961 (Version 2)
Quarter: 2014Q2

REPORT INFORMATION
  Report Type: Spontaneous
  Country: US (occurrence: US)
  Receive Date: 20140324
  Receipt Date: 20140407
  Transmission Date: 20141212
  Serious: Yes (Other)
  Sender: FDA-Public Use
  Company Number: US-009507513-1403USA006846

PATIENT
  Age: 66 Year
  Sex: Female

DRUGS (5)
  1. FOSAMAX [Suspect]
     Indication: OSTEOPOROSIS
     Dosage: 70 MG, QW
     Route: 048
     Dates: start: 200803, end: 201103
  2. METHOTREXATE [Suspect]
     Dosage: 12.5 MG, QW
     Route: 048
     Dates: start: 201112, end: 2012
  3. TYLENOL [Concomitant]
     Dosage: 650 MG, Q6H
  4. CODEINE PHOSPHATE (+) PROMETHAZINE HYDROCHLORIDE [Concomitant]
     Indication: COUGH
     Dosage: UNK
     Route: 048
  5. FOLIC ACID [Concomitant]
     Dosage: 1 MG, QD
     Route: 048

REACTIONS (1)
  - Osteonecrosis of jaw [Recovered/Resolved]
